FAERS Safety Report 5676641-0 (Version None)
Quarter: 2008Q1

REPORT INFORMATION
  Report Type: 
  Country: None (occurrence: None)
  Receive Date: 20080324
  Receipt Date: 20080313
  Transmission Date: 20080703
  Serious: Yes (Other)
  Sender: FDA-Public Use
  Company Number: US-JNJFOC-20080303442

PATIENT
  Sex: Female
  Weight: 64.41 kg

DRUGS (3)
  1. REMICADE [Suspect]
     Indication: DRUG USE FOR UNKNOWN INDICATION
     Route: 042
  2. HUMIRA [Concomitant]
     Route: 058
  3. HUMIRA [Concomitant]
     Indication: CROHN'S DISEASE
     Route: 058

REACTIONS (4)
  - HELICOBACTER INFECTION [None]
  - INFECTION [None]
  - SERUM SICKNESS [None]
  - WHITE BLOOD CELL COUNT INCREASED [None]
